FAERS Safety Report 6175984-4 (Version None)
Quarter: 2009Q2

REPORT INFORMATION
  Report Type: 
  Country: None (occurrence: None)
  Receive Date: 20090501
  Receipt Date: 20090421
  Transmission Date: 20091009
  Serious: Yes (Other)
  Sender: FDA-Public Use
  Company Number: AU-PFIZER INC-2009202835

PATIENT

DRUGS (1)
  1. CHAMPIX [Suspect]
     Dosage: UNK

REACTIONS (4)
  - ABDOMINAL PAIN UPPER [None]
  - ANOREXIA [None]
  - DIVERTICULUM [None]
  - NAUSEA [None]
